FAERS Safety Report 24985821 (Version 1)
Quarter: 2025Q1

REPORT INFORMATION
  Report Type: Spontaneous
  Country: IN (occurrence: IN)
  Receive Date: 20250219
  Receipt Date: 20250219
  Transmission Date: 20250409
  Serious: Yes (Other)
  Sender: MYLAN
  Company Number: IN-MYLANLABS-2025M1014484

PATIENT
  Age: 68 Year
  Sex: Male

DRUGS (2)
  1. TRAMADOL [Suspect]
     Active Substance: TRAMADOL
     Indication: Analgesic therapy
     Route: 065
  2. TRAMADOL [Suspect]
     Active Substance: TRAMADOL
     Dosage: UNK, QD (INCREASED FREQUENCY AND DOSE OF TRAMADOL TO AROUND 1000MG DAILY)
     Route: 065

REACTIONS (3)
  - Narcotic bowel syndrome [Recovering/Resolving]
  - Hyperaesthesia [Unknown]
  - Intentional product misuse [Unknown]
